FAERS Safety Report 7737508-7 (Version None)
Quarter: 2011Q3

REPORT INFORMATION
  Report Type: 
  Country: None (occurrence: None)
  Receive Date: 20110908
  Receipt Date: 20110831
  Transmission Date: 20111222
  Serious: Yes (Hospitalization)
  Sender: FDA-Public Use
  Company Number: AU-GLAXOSMITHKLINE-Z0003743A

PATIENT
  Sex: Female

DRUGS (3)
  1. PAZOPANIB [Suspect]
     Indication: OVARIAN CANCER
     Dosage: 800MG PER DAY
     Route: 048
     Dates: start: 20090903
  2. RESPRIM FORTE [Concomitant]
     Indication: PRODUCTIVE COUGH
     Dosage: 1TAB TWICE PER DAY
     Route: 048
     Dates: start: 20100301, end: 20100301
  3. ONDANSETRON [Concomitant]
     Indication: NAUSEA
     Dosage: 4MG SINGLE DOSE
     Route: 048
     Dates: start: 20100328, end: 20100328

REACTIONS (1)
  - MYALGIA INTERCOSTAL [None]
